FAERS Safety Report 5243104-6 (Version None)
Quarter: 2007Q1

REPORT INFORMATION
  Report Type: 
  Country: None (occurrence: None)
  Receive Date: 20070221
  Receipt Date: 20070209
  Transmission Date: 20070707
  Serious: Yes (Other)
  Sender: FDA-Public Use
  Company Number: US-PFIZER INC-2007000055

PATIENT
  Sex: Male
  Weight: 80.7 kg

DRUGS (12)
  1. NEURONTIN [Suspect]
     Indication: NEUROPATHY PERIPHERAL
     Route: 048
  2. LYRICA [Suspect]
     Indication: NEUROPATHY PERIPHERAL
     Route: 048
  3. LYRICA [Suspect]
     Indication: PAIN
  4. METHOCARBAMOL [Concomitant]
     Route: 048
  5. METHADONE HCL [Concomitant]
     Route: 048
  6. CELEBREX [Concomitant]
     Route: 048
  7. ACIPHEX [Concomitant]
     Route: 048
  8. HYZAAR [Concomitant]
     Route: 048
  9. SINEMET [Concomitant]
     Route: 048
  10. PROVIGIL [Concomitant]
     Route: 048
  11. CYMBALTA [Concomitant]
     Route: 048
  12. ZOLOFT [Concomitant]
     Route: 048

REACTIONS (7)
  - DIZZINESS [None]
  - DRUG INEFFECTIVE [None]
  - FEELING ABNORMAL [None]
  - HYPERHIDROSIS [None]
  - MYALGIA [None]
  - PAIN IN EXTREMITY [None]
  - VISION BLURRED [None]
